FAERS Safety Report 25489796 (Version 1)
Quarter: 2025Q2

REPORT INFORMATION
  Report Type: Spontaneous
  Country: CN (occurrence: CN)
  Receive Date: 20250627
  Receipt Date: 20250627
  Transmission Date: 20250717
  Serious: Yes (Other)
  Sender: PFIZER
  Company Number: CN-PFIZER INC-202500129713

PATIENT

DRUGS (1)
  1. LORBRENA [Suspect]
     Active Substance: LORLATINIB

REACTIONS (2)
  - Pancreatitis [Unknown]
  - Hypertriglyceridaemia [Unknown]
